FAERS Safety Report 4967123-X (Version None)
Quarter: 2006Q3

REPORT INFORMATION
  Report Type: 
  Country: None (occurrence: None)
  Receive Date: 20060403
  Receipt Date: 20060321
  Transmission Date: 20061208
  Serious: Yes (Hospitalization)
  Sender: FDA-Public Use
  Company Number: 2005158897

PATIENT
  Age: 74 Year
  Sex: Male
  Weight: 73.7 kg

DRUGS (7)
  1. SUTENT [Suspect]
     Indication: GASTROINTESTINAL STROMAL TUMOUR
     Dosage: 50 MG (25 MG, 2 IN 1 D), ORAL
     Route: 048
     Dates: start: 20050714
  2. LISINOPRIL [Concomitant]
  3. CYANOCOBALAMIN [Concomitant]
  4. GLYBURIDE [Concomitant]
  5. ASPIRIN [Concomitant]
  6. PSYLLIUM HYDROPHILIC MUCILLOID (PSYLLIUM HYDROPHILIC MUCILLOID] [Concomitant]
  7. VITAMIN CAP [Concomitant]

REACTIONS (1)
  - ABDOMINAL ABSCESS [None]
